FAERS Safety Report 12700260 (Version 4)
Quarter: 2020Q1

REPORT INFORMATION
  Report Type: Spontaneous
  Country: US (occurrence: US)
  Receive Date: 20160830
  Receipt Date: 20200309
  Transmission Date: 20200409
  Serious: No
  Sender: FDA-Public Use
  Company Number: US-SA-2015SA121032

PATIENT
  Age: 9 Year
  Sex: Male
  Weight: 27.2 kg

DRUGS (8)
  1. MOMETASONE FUROATE. [Concomitant]
     Active Substance: MOMETASONE FUROATE
     Dosage: UNK UNK,PRN
     Dates: start: 20150710
  2. NORMAL SALINE [Concomitant]
     Active Substance: SODIUM CHLORIDE
     Indication: ANAPHYLACTIC REACTION
     Dosage: .9 %,UNK
     Route: 042
     Dates: start: 20150623
  3. ACETAMINOPHEN. [Concomitant]
     Active Substance: ACETAMINOPHEN
     Indication: PREMEDICATION
     Dosage: 250 MG,UNK
     Route: 048
     Dates: start: 20150623
  4. FABRAZYME [Suspect]
     Active Substance: AGALSIDASE BETA
     Indication: FABRY^S DISEASE
     Dosage: .73 MG/KG,QOW
     Route: 041
     Dates: start: 20130423
  5. FABRAZYME [Suspect]
     Active Substance: AGALSIDASE BETA
     Indication: LIPIDOSIS
     Dosage: 45 MG, QOW
     Route: 042
     Dates: start: 20200224
  6. VYVANSE [Concomitant]
     Active Substance: LISDEXAMFETAMINE DIMESYLATE
     Indication: PREMEDICATION
     Dosage: 20 MG,QD
     Route: 048
     Dates: start: 20150710
  7. EPIPEN [Concomitant]
     Active Substance: EPINEPHRINE
     Indication: ANAPHYLACTIC REACTION
     Dosage: .15 MG,PRN
     Route: 030
     Dates: start: 20150623
  8. ZYRTEC [Concomitant]
     Active Substance: CETIRIZINE HYDROCHLORIDE
     Indication: PREMEDICATION
     Dosage: 10 MG,PRN
     Route: 048
     Dates: start: 20150710

REACTIONS (7)
  - Headache [Recovered/Resolved]
  - Retching [Recovered/Resolved]
  - Hyperhidrosis [Recovered/Resolved]
  - Weight increased [Unknown]
  - Sensation of foreign body [Recovered/Resolved]
  - Cough [Recovered/Resolved]
  - Fatigue [Recovered/Resolved]

NARRATIVE: CASE EVENT DATE: 20150804
